APPROVED DRUG PRODUCT: TRAMADOL HYDROCHLORIDE
Active Ingredient: TRAMADOL HYDROCHLORIDE
Strength: 100MG
Dosage Form/Route: TABLET, EXTENDED RELEASE;ORAL
Application: A200503 | Product #001 | TE Code: AB1
Applicant: LUPIN LTD
Approved: Aug 29, 2011 | RLD: No | RS: Yes | Type: RX